FAERS Safety Report 12776335 (Version 1)
Quarter: 2016Q3

REPORT INFORMATION
  Report Type: Spontaneous
  Country: US (occurrence: US)
  Receive Date: 20160923
  Receipt Date: 20160923
  Transmission Date: 20161109
  Serious: Yes (Hospitalization)
  Sender: FDA-Public Use
  Company Number: US-ARBOR PHARMACEUTICALS, LLC-US-2016ARB001778

PATIENT

DRUGS (4)
  1. EVEKEO [Suspect]
     Active Substance: AMPHETAMINE SULFATE
     Dosage: 20 MG, QD
     Route: 048
     Dates: start: 20160822, end: 20160902
  2. EVEKEO [Suspect]
     Active Substance: AMPHETAMINE SULFATE
     Indication: ATTENTION DEFICIT/HYPERACTIVITY DISORDER
     Dosage: 10 MG, QD  (ABOUT 7 DOSES) NOT CONSECUTIVELY
     Dates: start: 20160701, end: 20160715
  3. VESTURA [Suspect]
     Active Substance: DROSPIRENONE\ETHINYL ESTRADIOL
     Indication: ACNE
     Dosage: UNK, QD
     Route: 048
     Dates: end: 20160902
  4. EVEKEO [Suspect]
     Active Substance: AMPHETAMINE SULFATE
     Dosage: 20 MG, QD (TOOK ABOUT 3 DOSES)
     Route: 048
     Dates: start: 201607, end: 201607

REACTIONS (3)
  - Depression [Unknown]
  - Suicide attempt [Unknown]
  - Drug ineffective [Unknown]

NARRATIVE: CASE EVENT DATE: 2016
